FAERS Safety Report 9382477 (Version 3)
Quarter: 2013Q3

REPORT INFORMATION
  Report Type: Spontaneous
  Country: FR (occurrence: FR)
  Receive Date: 20130703
  Receipt Date: 20130905
  Transmission Date: 20140515
  Serious: Yes (Hospitalization)
  Sender: FDA-Public Use
  Company Number: FR-UCBSA-090219

PATIENT
  Age: 60 Year
  Sex: Female

DRUGS (8)
  1. KEPPRA [Suspect]
     Route: 048
     Dates: start: 20130330, end: 20130419
  2. TRILEPTAL [Suspect]
     Indication: STATUS EPILEPTICUS
     Dosage: ONCE NIGHTLY
     Route: 048
     Dates: start: 2006, end: 201304
  3. DEPAKINE [Concomitant]
     Indication: STATUS EPILEPTICUS
     Dosage: DOSE INCREASED
  4. PARKINANE [Concomitant]
  5. LEVOTHYROX [Concomitant]
  6. SINGULAIR [Concomitant]
  7. DOLIPRANE [Concomitant]
  8. PLAVIX [Concomitant]

REACTIONS (3)
  - Hyponatraemia [Recovered/Resolved]
  - Confusional state [Recovered/Resolved]
  - Somnolence [Unknown]
